FAERS Safety Report 8299239-7 (Version None)
Quarter: 2012Q2

REPORT INFORMATION
  Report Type: 
  Country: None (occurrence: None)
  Receive Date: 20120419
  Receipt Date: 20120418
  Transmission Date: 20120825
  Serious: No
  Sender: FDA-Public Use
  Company Number: US-PFIZER INC-2012097208

PATIENT
  Sex: Female
  Weight: 68.027 kg

DRUGS (4)
  1. CHANTIX [Suspect]
     Dosage: 1 MG, 2X/DAY
     Dates: start: 20120101, end: 20120414
  2. EFFIENT [Concomitant]
     Indication: ANGIOPATHY
     Dosage: 10 MG, DAILY
  3. TOPROL-XL [Concomitant]
     Indication: BLOOD PRESSURE ABNORMAL
     Dosage: 50 MG, DAILY
  4. CHANTIX [Suspect]
     Indication: SMOKING CESSATION THERAPY
     Dosage: 0.5 MG, 1X/DAY
     Dates: start: 20120301, end: 20120101

REACTIONS (3)
  - SKIN EXFOLIATION [None]
  - PRURITUS [None]
  - RASH [None]
